FAERS Safety Report 4676889-8 (Version None)
Quarter: 2005Q2

REPORT INFORMATION
  Report Type: 
  Country: None (occurrence: None)
  Receive Date: 20050527
  Receipt Date: 20050520
  Transmission Date: 20051028
  Serious: Yes (Death, Hospitalization)
  Sender: FDA-Public Use
  Company Number: TPA2003A00253

PATIENT
  Age: 66 Year
  Sex: Male

DRUGS (1)
  1. GLIPIZIDE [Suspect]
     Dosage: PER ORAL
     Route: 048

REACTIONS (9)
  - ADENOCARCINOMA [None]
  - CARDIO-RESPIRATORY ARREST [None]
  - HAEMODIALYSIS [None]
  - HYPOGLYCAEMIA [None]
  - METASTATIC NEOPLASM [None]
  - ODYNOPHAGIA [None]
  - PNEUMONIA [None]
  - RENAL FAILURE ACUTE [None]
  - THROMBOCYTOPENIA [None]
